FAERS Safety Report 25245193 (Version 1)
Quarter: 2025Q2

REPORT INFORMATION
  Report Type: Spontaneous
  Country: US (occurrence: US)
  Receive Date: 20250428
  Receipt Date: 20250428
  Transmission Date: 20250717
  Serious: Yes (Other)
  Sender: BRISTOL-MYERS SQUIBB COMPANY
  Company Number: US-BRISTOL-MYERS SQUIBB COMPANY-2025-058311

PATIENT
  Age: 75 Year
  Sex: Female
  Weight: 69.4 kg

DRUGS (1)
  1. REVLIMID [Suspect]
     Active Substance: LENALIDOMIDE
     Indication: Plasma cell myeloma
     Route: 048
     Dates: start: 202408

REACTIONS (4)
  - Neuropathy peripheral [Recovering/Resolving]
  - Hunger [Recovering/Resolving]
  - Diarrhoea [Recovering/Resolving]
  - Constipation [Recovering/Resolving]
